FAERS Safety Report 18074039 (Version 2)
Quarter: 2020Q3

REPORT INFORMATION
  Report Type: Spontaneous
  Country: GB (occurrence: GB)
  Receive Date: 20200727
  Receipt Date: 20200806
  Transmission Date: 20201103
  Serious: Yes (Other)
  Sender: FDA-Public Use
  Company Number: NVSC2020GB204272

PATIENT

DRUGS (1)
  1. BISOPROLOL [Suspect]
     Active Substance: BISOPROLOL
     Indication: PRODUCT USED FOR UNKNOWN INDICATION
     Dosage: 2.5 MG, QD
     Route: 048

REACTIONS (5)
  - Discomfort [Unknown]
  - Product solubility abnormal [Unknown]
  - Palpitations [Unknown]
  - Pain [Unknown]
  - Mouth ulceration [Unknown]

NARRATIVE: CASE EVENT DATE: 202007
